FAERS Safety Report 10684250 (Version 2)
Quarter: 2014Q4

REPORT INFORMATION
  Report Type: Spontaneous
  Country: IT (occurrence: IT)
  Receive Date: 20141231
  Receipt Date: 20141231
  Transmission Date: 20150529
  Serious: Yes (Other)
  Sender: FDA-Public Use
  Company Number: IT-RANBAXY-2014R1-89928

PATIENT
  Age: 21 Year
  Sex: Female

DRUGS (5)
  1. LEVONORGESTREL. [Interacting]
     Active Substance: LEVONORGESTREL
     Indication: ACNE
     Dosage: UNK
     Route: 065
  2. ETHINYL ESTRADIOL [Interacting]
     Active Substance: ETHINYL ESTRADIOL
     Indication: ACNE
     Dosage: UNK
     Route: 065
  3. ETHINYL ESTRADIOL [Interacting]
     Active Substance: ETHINYL ESTRADIOL
     Indication: MENSTRUAL DISORDER
  4. TOPIRAMATE. [Suspect]
     Active Substance: TOPIRAMATE
     Indication: MIGRAINE WITHOUT AURA
     Dosage: 25 MG, DAILY TO TITRATE TO DOSAGE OF 50MG, BID
     Route: 065
  5. LEVONORGESTREL. [Interacting]
     Active Substance: LEVONORGESTREL
     Indication: MENSTRUAL DISORDER

REACTIONS (3)
  - Metrorrhagia [Unknown]
  - Drug interaction [Unknown]
  - Ovarian cyst [Unknown]
